FAERS Safety Report 5993495-3 (Version None)
Quarter: 2008Q4

REPORT INFORMATION
  Report Type: 
  Country: None (occurrence: None)
  Receive Date: 20081212
  Receipt Date: 20081208
  Transmission Date: 20090506
  Serious: Yes (Other)
  Sender: FDA-Public Use
  Company Number: US-BAYER-200840423NA

PATIENT
  Sex: Female

DRUGS (6)
  1. CLIMARA [Suspect]
     Indication: MENOPAUSAL SYMPTOMS
     Route: 062
  2. OGEN [Suspect]
  3. PROVERA [Suspect]
  4. PREMARIN [Suspect]
  5. CYCRIN [Suspect]
  6. PREMPRO [Suspect]

REACTIONS (1)
  - BREAST CANCER [None]
